FAERS Safety Report 14233450 (Version 1)
Quarter: 2017Q4

REPORT INFORMATION
  Report Type: Spontaneous
  Country: US (occurrence: US)
  Receive Date: 20171128
  Receipt Date: 20171128
  Transmission Date: 20180321
  Serious: No
  Sender: FDA-Public Use
  Company Number: US-LUNDBECK-DKLU2029987

PATIENT
  Sex: Male

DRUGS (2)
  1. NORTHERA [Suspect]
     Active Substance: DROXIDOPA
     Indication: PRODUCT USED FOR UNKNOWN INDICATION
     Route: 048
  2. NORTHERA [Suspect]
     Active Substance: DROXIDOPA
     Route: 048

REACTIONS (10)
  - Myalgia [Unknown]
  - Asthenia [Unknown]
  - Insomnia [Unknown]
  - Blood pressure decreased [Unknown]
  - Arthralgia [Unknown]
  - Headache [Unknown]
  - Incontinence [Unknown]
  - Fatigue [Unknown]
  - Hypoaesthesia [Unknown]
  - Dizziness [Unknown]
